FAERS Safety Report 13967894 (Version 2)
Quarter: 2017Q4

REPORT INFORMATION
  Report Type: Spontaneous
  Country: DE (occurrence: DE)
  Receive Date: 20170914
  Receipt Date: 20171027
  Transmission Date: 20180320
  Serious: Yes (Life-Threatening, Hospitalization)
  Sender: FDA-Public Use
  Company Number: PHHY2017DE134682

PATIENT
  Sex: Female

DRUGS (1)
  1. SANDOSTATIN LAR DEPOT [Suspect]
     Active Substance: OCTREOTIDE ACETATE
     Indication: PRODUCT USED FOR UNKNOWN INDICATION
     Dosage: 1 DF, QW5 (EVERY 5 WEEKS)
     Route: 065
     Dates: start: 1997

REACTIONS (4)
  - Injection site reaction [Unknown]
  - Inappropriate schedule of drug administration [Unknown]
  - Sepsis [Unknown]
  - Injection site mass [Unknown]

NARRATIVE: CASE EVENT DATE: 1997
